FAERS Safety Report 5347878-5 (Version None)
Quarter: 2007Q2

REPORT INFORMATION
  Report Type: 
  Country: None (occurrence: None)
  Receive Date: 20070606
  Receipt Date: 20070530
  Transmission Date: 20071010
  Serious: Yes (Other)
  Sender: FDA-Public Use
  Company Number: JP-MERCK-0706USA00264

PATIENT
  Sex: Female

DRUGS (2)
  1. INDOCIN I.V. [Suspect]
     Indication: PATENT DUCTUS ARTERIOSUS
     Route: 041
  2. INDOCIN I.V. [Suspect]
     Indication: PROPHYLAXIS
     Route: 041

REACTIONS (2)
  - INTESTINAL PERFORATION [None]
  - PERIVENTRICULAR LEUKOMALACIA [None]
